FAERS Safety Report 10376310 (Version 3)
Quarter: 2015Q1

REPORT INFORMATION
  Report Type: Spontaneous
  Country: US (occurrence: US)
  Receive Date: 20140811
  Receipt Date: 20150102
  Transmission Date: 20150720
  Serious: Yes (Death)
  Sender: FDA-Public Use
  Company Number: US-INCYTE CORPORATION-2014IN001636

PATIENT
  Age: 82 Year
  Sex: Male

DRUGS (10)
  1. SELENIUM [Concomitant]
     Active Substance: SELENIUM
  2. FLECAINIDE [Concomitant]
     Active Substance: FLECAINIDE
  3. WARFARIN [Concomitant]
     Active Substance: WARFARIN
     Dosage: UNK
     Dates: start: 20140605
  4. JAKAFI [Suspect]
     Active Substance: RUXOLITINIB
     Indication: MYELOFIBROSIS
     Dosage: 15 MG, BID
     Route: 048
     Dates: start: 20140605
  5. HYDROCHLOROTHIAZIDE. [Concomitant]
     Active Substance: HYDROCHLOROTHIAZIDE
  6. SAW PALMETTO                       /00833501/ [Concomitant]
     Active Substance: SAW PALMETTO
  7. METOPROLOL [Concomitant]
     Active Substance: METOPROLOL
  8. JAKAFI [Suspect]
     Active Substance: RUXOLITINIB
     Dosage: 15 MG, QD
     Route: 048
     Dates: start: 20140701
  9. AVAPRO [Concomitant]
     Active Substance: IRBESARTAN
  10. MULTIVITAMIN                       /00097801/ [Concomitant]
     Active Substance: VITAMINS

REACTIONS (5)
  - Platelet count decreased [Unknown]
  - Death [Fatal]
  - Asthenia [Unknown]
  - Haemorrhoidal haemorrhage [Recovered/Resolved]
  - Dizziness [Unknown]

NARRATIVE: CASE EVENT DATE: 20140607
